FAERS Safety Report 9970046 (Version 1)
Quarter: 2014Q1

REPORT INFORMATION
  Report Type: Spontaneous
  Country: CH (occurrence: None)
  Receive Date: 20140304
  Receipt Date: 20140304
  Transmission Date: 20141002
  Serious: Yes (Other)
  Sender: FDA-Public Use
  Company Number: 2014000054

PATIENT
  Age: 52 Year
  Sex: Female

DRUGS (3)
  1. ACEON [Suspect]
     Indication: HYPERTENSION
     Route: 048
     Dates: start: 20140206, end: 20140208
  2. XANAX (ALPRAZOLAM) [Concomitant]
  3. TRANXILLIUM (CLORAZEPATE DIPOTASSIUM) [Concomitant]

REACTIONS (4)
  - Dyspnoea [None]
  - Erythema [None]
  - Angioedema [None]
  - Hypersensitivity [None]
